FAERS Safety Report 4647956-X (Version None)
Quarter: 2005Q2

REPORT INFORMATION
  Report Type: 
  Country: None (occurrence: None)
  Receive Date: 20050428
  Receipt Date: 20050419
  Transmission Date: 20051028
  Serious: Yes (Hospitalization)
  Sender: FDA-Public Use
  Company Number: US-ABBOTT-05P-163-0297910-00

PATIENT
  Sex: Female
  Weight: 40.86 kg

DRUGS (8)
  1. HUMIRA [Suspect]
     Indication: RHEUMATOID ARTHRITIS
     Route: 058
     Dates: start: 20041101, end: 20050315
  2. HUMIRA [Suspect]
     Route: 058
     Dates: start: 20050401
  3. PROPACET 100 [Concomitant]
     Indication: PAIN
     Route: 048
  4. ALPRAZOLAM [Concomitant]
     Indication: ANXIETY
     Route: 048
  5. CANDESARTAN CILEXETIL [Concomitant]
     Indication: BLOOD PRESSURE INCREASED
     Route: 048
  6. METOPROLOL TARTRATE [Concomitant]
     Indication: BLOOD PRESSURE INCREASED
     Route: 048
  7. VITAMINS [Concomitant]
     Indication: VITAMIN SUPPLEMENTATION
     Route: 048
  8. CALCIUM GLUCONATE [Concomitant]
     Indication: MINERAL SUPPLEMENTATION
     Route: 048

REACTIONS (3)
  - ALOPECIA [None]
  - FALL [None]
  - SKIN ULCER [None]
